FAERS Safety Report 13081903 (Version 4)
Quarter: 2017Q1

REPORT INFORMATION
  Report Type: Report from Study
  Country: US (occurrence: US)
  Receive Date: 20170103
  Receipt Date: 20170228
  Transmission Date: 20170428
  Serious: Yes (Hospitalization, Other)
  Sender: FDA-Public Use
  Company Number: US-GILEAD-2016-0250582

PATIENT
  Age: 57 Year
  Sex: Female

DRUGS (2)
  1. AMBRISENTAN [Suspect]
     Active Substance: AMBRISENTAN
     Dosage: 5 MG, UNK
     Route: 065
     Dates: start: 20100920
  2. AMBRISENTAN [Suspect]
     Active Substance: AMBRISENTAN
     Indication: PERIPHERAL ARTERIAL OCCLUSIVE DISEASE
     Dosage: 10 MG, UNK
     Route: 065

REACTIONS (6)
  - Calcinosis [Unknown]
  - Peripheral vascular disorder [Unknown]
  - Off label use [Not Recovered/Not Resolved]
  - Finger amputation [Unknown]
  - Pain in extremity [Not Recovered/Not Resolved]
  - Localised infection [Unknown]

NARRATIVE: CASE EVENT DATE: 20170123
